FAERS Safety Report 6841316-9 (Version None)
Quarter: 2010Q3

REPORT INFORMATION
  Report Type: 
  Country: None (occurrence: None)
  Receive Date: 20100714
  Receipt Date: 20070817
  Transmission Date: 20110219
  Serious: No
  Sender: FDA-Public Use
  Company Number: US-PFIZER INC-2007054261

PATIENT
  Age: 46 Year
  Sex: Male
  Weight: 131.1 kg

DRUGS (11)
  1. CHANTIX [Suspect]
     Dates: start: 20070524, end: 20070625
  2. MAALOX [Concomitant]
  3. MULTI-VITAMINS [Concomitant]
  4. ACETYLSALICYLIC ACID [Concomitant]
  5. METFORMIN HCL [Concomitant]
  6. ANAFRANIL [Concomitant]
  7. ATENOLOL [Concomitant]
  8. HYDROCHLOROTHIAZIDE [Concomitant]
  9. COENZYME Q10 [Concomitant]
  10. LOVAZA [Concomitant]
  11. LOPID [Concomitant]

REACTIONS (2)
  - HYPOAESTHESIA [None]
  - PHARYNGEAL INFLAMMATION [None]
